FAERS Safety Report 22152095 (Version 1)
Quarter: 2023Q1

REPORT INFORMATION
  Report Type: Spontaneous
  Country: GR (occurrence: GR)
  Receive Date: 20230329
  Receipt Date: 20230329
  Transmission Date: 20230417
  Serious: Yes (Other)
  Sender: FDA-Public Use
  Company Number: GR-UNITED THERAPEUTICS-UNT-2023-008041

PATIENT

DRUGS (3)
  1. REMODULIN [Suspect]
     Active Substance: TREPROSTINIL
     Indication: Pulmonary arterial hypertension
     Dosage: UNK, CONTINUING
     Route: 058
  2. REMODULIN [Suspect]
     Active Substance: TREPROSTINIL
     Indication: Pulmonary veno-occlusive disease
  3. REMODULIN [Suspect]
     Active Substance: TREPROSTINIL
     Indication: Pulmonary capillary haemangiomatosis

REACTIONS (6)
  - Hypoxia [Unknown]
  - Pulmonary congestion [Unknown]
  - Haemodynamic instability [Unknown]
  - Pulmonary veno-occlusive disease [Unknown]
  - Pulmonary capillary haemangiomatosis [Unknown]
  - Product use in unapproved indication [Unknown]
